FAERS Safety Report 24340541 (Version 2)
Quarter: 2024Q4

REPORT INFORMATION
  Report Type: Report from Study
  Country: US (occurrence: US)
  Receive Date: 20240919
  Receipt Date: 20241002
  Transmission Date: 20250115
  Serious: Yes (Death)
  Sender: BAYER
  Company Number: US-BAYER-2024A134164

PATIENT
  Age: 77 Year
  Sex: Female

DRUGS (1)
  1. ADEMPAS [Suspect]
     Active Substance: RIOCIGUAT

REACTIONS (1)
  - Death [Fatal]

NARRATIVE: CASE EVENT DATE: 20240801
